FAERS Safety Report 12988558 (Version 1)
Quarter: 2016Q4

REPORT INFORMATION
  Report Type: Spontaneous
  Country: US (occurrence: US)
  Receive Date: 20161130
  Receipt Date: 20161130
  Transmission Date: 20170207
  Serious: No
  Sender: FDA-Public Use
  Company Number: US-ALLERGAN-1000087469

PATIENT
  Age: 80 Year
  Sex: Female

DRUGS (8)
  1. REMINYL [Concomitant]
     Active Substance: GALANTAMINE
     Indication: DEMENTIA ALZHEIMER^S TYPE
     Dosage: 24 MG
     Route: 048
  2. ATORVOX [Concomitant]
     Active Substance: ATORVASTATIN
     Dosage: 10 MG
     Route: 048
  3. CHLORATHIAZIDE [Concomitant]
     Dosage: 25 MG
     Route: 048
  4. VITAMIN D [Concomitant]
     Active Substance: CHOLECALCIFEROL
     Dosage: UNK
     Route: 048
  5. BUPROPION. [Concomitant]
     Active Substance: BUPROPION
     Dosage: 300 MG
     Route: 048
  6. LEVOTHYROXINE SODIUM UNK [Concomitant]
     Active Substance: LEVOTHYROXINE SODIUM
     Dosage: 100 MCG
     Route: 048
  7. NAMENDA [Suspect]
     Active Substance: MEMANTINE HYDROCHLORIDE
     Indication: DEMENTIA ALZHEIMER^S TYPE
     Dosage: 10 MG, BID
     Route: 048
     Dates: end: 20160906
  8. PANTOPRAZOLE [Concomitant]
     Active Substance: PANTOPRAZOLE SODIUM
     Dosage: 40 MG

REACTIONS (4)
  - Panic attack [Not Recovered/Not Resolved]
  - Malaise [Not Recovered/Not Resolved]
  - Drug dose omission [Not Recovered/Not Resolved]
  - Cognitive disorder [Not Recovered/Not Resolved]

NARRATIVE: CASE EVENT DATE: 20160906
